FAERS Safety Report 8418007-6 (Version None)
Quarter: 2012Q2

REPORT INFORMATION
  Report Type: 
  Country: None (occurrence: None)
  Receive Date: 20120607
  Receipt Date: 20120524
  Transmission Date: 20120825
  Serious: No
  Sender: FDA-Public Use
  Company Number: DE-JNJFOC-20120409840

PATIENT
  Sex: Female
  Weight: 118 kg

DRUGS (15)
  1. TAPENTADOL HYDROCHLORIDE [Suspect]
     Indication: DIABETIC NEUROPATHY
     Route: 065
     Dates: start: 20111203, end: 20120301
  2. TAPENTADOL HYDROCHLORIDE [Suspect]
     Indication: BACK PAIN
     Route: 065
     Dates: start: 20111203, end: 20120301
  3. HYDROMORPHONE HYDROCHLORIDE [Concomitant]
     Indication: FIBROMYALGIA
     Route: 065
  4. METAMIZOLE [Concomitant]
     Indication: FIBROMYALGIA
     Route: 065
  5. TRAMADOL HCL [Concomitant]
     Indication: DIABETIC NEUROPATHY
     Route: 065
  6. ANALGESICS [Concomitant]
     Indication: PRODUCT USED FOR UNKNOWN INDICATION
     Route: 065
  7. HYDROMORPHONE HYDROCHLORIDE [Concomitant]
     Indication: DIABETIC NEUROPATHY
     Route: 065
  8. METAMIZOLE [Concomitant]
     Indication: DIABETIC NEUROPATHY
     Route: 065
  9. TRAMADOL HCL [Concomitant]
     Indication: FIBROMYALGIA
     Route: 065
  10. TRAMADOL HCL [Concomitant]
     Indication: BACK PAIN
     Route: 065
  11. HYDROMORPHONE HYDROCHLORIDE [Concomitant]
     Indication: BACK PAIN
     Route: 065
  12. TAPENTADOL HYDROCHLORIDE [Suspect]
     Indication: FIBROMYALGIA
     Route: 065
     Dates: start: 20111203, end: 20120301
  13. LAXATIVES [Concomitant]
     Indication: PRODUCT USED FOR UNKNOWN INDICATION
     Route: 065
  14. METAMIZOLE [Concomitant]
     Indication: BACK PAIN
     Route: 065
  15. OPIPRAMOL [Concomitant]
     Indication: DEPRESSION
     Route: 065

REACTIONS (2)
  - TREMOR [None]
  - MYOCLONUS [None]
